FAERS Safety Report 6180846-2 (Version None)
Quarter: 2009Q2

REPORT INFORMATION
  Report Type: 
  Country: None (occurrence: None)
  Receive Date: 20090506
  Receipt Date: 20090226
  Transmission Date: 20091009
  Serious: Yes (Disabling)
  Sender: FDA-Public Use
  Company Number: DE-PFIZER INC-2009202918

PATIENT

DRUGS (1)
  1. LYRICA [Suspect]
     Indication: HEADACHE
     Route: 048

REACTIONS (2)
  - EUPHORIC MOOD [None]
  - WITHDRAWAL SYNDROME [None]
